FAERS Safety Report 19844453 (Version 2)
Quarter: 2021Q3

REPORT INFORMATION
  Report Type: Spontaneous
  Country: US (occurrence: US)
  Receive Date: 20210916
  Receipt Date: 20210923
  Transmission Date: 20211014
  Serious: Yes (Death, Other)
  Sender: FDA-Public Use
  Company Number: US-TEVA-2021-US-1952548

PATIENT
  Age: 44 Year
  Sex: Male

DRUGS (10)
  1. IFOSFAMIDE. [Suspect]
     Active Substance: IFOSFAMIDE
     Indication: ANGIOCENTRIC LYMPHOMA
     Dosage: MODIFIED SMILE REGIMEN; ON DAYS 2 TO 4 OF A 28?DAY CYCLE
     Route: 065
     Dates: start: 20200120
  2. METHOTREXATE. [Suspect]
     Active Substance: METHOTREXATE
     Indication: ANGIOCENTRIC LYMPHOMA
     Dosage: MODIFIED SMILE REGIMEN; 2 G/M2 ON DAY 1 OF A 28?DAY CYCLE
     Route: 065
     Dates: start: 20200119
  3. METHOTREXATE. [Suspect]
     Active Substance: METHOTREXATE
     Indication: ANGIOCENTRIC LYMPHOMA
     Route: 050
     Dates: start: 20200211
  4. PEGASPARAGASE [Suspect]
     Active Substance: PEGASPARGASE
     Indication: ANGIOCENTRIC LYMPHOMA
     Dosage: MODIFIED SMILE REGIMEN; 2000 U/M2 ON DAY 8 OF A 28?DAY CYCLE
     Route: 065
     Dates: start: 20200126
  5. DEXAMETHASONE. [Suspect]
     Active Substance: DEXAMETHASONE
     Indication: ANGIOCENTRIC LYMPHOMA
     Dosage: 40 MILLIGRAM DAILY; MODIFIED SMILE REGIMEN; ON DAYS 2 TO 4 OF A 28?DAY CYCLE
     Route: 065
     Dates: start: 20200120
  6. METHOTREXATE. [Suspect]
     Active Substance: METHOTREXATE
     Indication: ANGIOCENTRIC LYMPHOMA
     Route: 050
     Dates: start: 20200214
  7. VP?16 [Suspect]
     Active Substance: ETOPOSIDE
     Indication: ANGIOCENTRIC LYMPHOMA
     Dosage: MODIFIED SMILE REGIMEN; ON DAYS 2 TO 4 OF A 28?DAY CYCLE
     Route: 065
     Dates: start: 20200120
  8. METHOTREXATE. [Suspect]
     Active Substance: METHOTREXATE
     Indication: ANGIOCENTRIC LYMPHOMA
     Route: 050
     Dates: start: 20200219
  9. METHOTREXATE. [Suspect]
     Active Substance: METHOTREXATE
     Indication: ANGIOCENTRIC LYMPHOMA
     Route: 050
     Dates: start: 20200221
  10. METHOTREXATE. [Suspect]
     Active Substance: METHOTREXATE
     Indication: ANGIOCENTRIC LYMPHOMA
     Dosage: REDUCED DOSE
     Route: 065
     Dates: start: 20200327

REACTIONS (3)
  - Fatigue [Unknown]
  - Neutropenia [Unknown]
  - Cytopenia [Unknown]

NARRATIVE: CASE EVENT DATE: 2020
